FAERS Safety Report 8340995-7 (Version None)
Quarter: 2012Q2

REPORT INFORMATION
  Report Type: 
  Country: None (occurrence: None)
  Receive Date: 20120507
  Receipt Date: 20120427
  Transmission Date: 20120825
  Serious: Yes (Other)
  Sender: FDA-Public Use
  Company Number: US-ASTRAZENECA-2012SE27863

PATIENT
  Age: 49 Year
  Sex: Male

DRUGS (2)
  1. SYMBICORT [Suspect]
     Dosage: 1 PUFF, TWICE DAILY
     Route: 055
  2. SYMBICORT [Suspect]
     Dosage: 2 PUFF, TWICE DAILY
     Route: 055

REACTIONS (1)
  - PULMONARY FUNCTION TEST DECREASED [None]
